FAERS Safety Report 15112243 (Version 2)
Quarter: 2018Q3

REPORT INFORMATION
  Report Type: Spontaneous
  Country: IT (occurrence: IT)
  Receive Date: 20180705
  Receipt Date: 20180731
  Transmission Date: 20181010
  Serious: Yes (Death, Other)
  Sender: FDA-Public Use
  Company Number: IT-BAYER-2018-121857

PATIENT
  Age: 42 Year
  Sex: Female

DRUGS (4)
  1. STIVARGA [Suspect]
     Active Substance: REGORAFENIB
     Indication: COLON CANCER
     Dosage: 160 MG DAILY (1?21 Q28 DAYS)
     Dates: start: 201604
  2. STIVARGA [Suspect]
     Active Substance: REGORAFENIB
     Indication: METASTASES TO LUNG
  3. STIVARGA [Suspect]
     Active Substance: REGORAFENIB
     Indication: METASTASES TO SKIN
  4. STIVARGA [Suspect]
     Active Substance: REGORAFENIB
     Indication: METASTASES TO CENTRAL NERVOUS SYSTEM

REACTIONS (13)
  - Colon cancer [Fatal]
  - Metastases to adrenals [Recovered/Resolved]
  - Abdominal mass [None]
  - Metastases to central nervous system [None]
  - Metastases to abdominal wall [None]
  - Metastases to skin [None]
  - Karnofsky scale worsened [None]
  - Metastases to lung [None]
  - Skin lesion [None]
  - General physical health deterioration [Fatal]
  - Metastases to liver [None]
  - Skin mass [None]
  - Headache [None]

NARRATIVE: CASE EVENT DATE: 201703
